FAERS Safety Report 8695913 (Version 2)
Quarter: 2013Q4

REPORT INFORMATION
  Report Type: Spontaneous
  Country: US (occurrence: US)
  Receive Date: 20120801
  Receipt Date: 20131031
  Transmission Date: 20140711
  Serious: Yes (Hospitalization, Other)
  Sender: FDA-Public Use
  Company Number: US-MSD-1207USA011402

PATIENT
  Age: 79 Year
  Sex: Male

DRUGS (17)
  1. ZOCOR [Suspect]
     Dosage: 20 MG, 40 MG
  2. DOXAZOSIN MESYLATE [Suspect]
     Dosage: 8 MG, UNK
  3. GEMFIBROZIL [Suspect]
     Dosage: 600 MG, BID
  4. FINASTERIDE [Suspect]
     Dosage: 5 MG, UNK
  5. AMLODIPINE [Suspect]
     Dosage: 10 MG, UNK
  6. FERROUS SULFATE [Concomitant]
  7. SODIUM POLYSTYRENE SULFONATE [Concomitant]
  8. ERGOCALCIFEROL [Concomitant]
  9. LACTULOSE [Concomitant]
  10. TRAVOPROST [Concomitant]
  11. ASPIRIN [Concomitant]
  12. LEVOTHYROXINE SODIUM [Concomitant]
  13. INSULIN GLARGINE [Concomitant]
  14. HYDRALAZINE [Concomitant]
  15. METOPROLOL [Concomitant]
  16. LISINOPRIL [Concomitant]
  17. FUROSEMIDE [Concomitant]

REACTIONS (12)
  - Mitral valve incompetence [Unknown]
  - Tearfulness [Unknown]
  - Ileus [Unknown]
  - Antinuclear antibody positive [Unknown]
  - Paraesthesia [Unknown]
  - Gait disturbance [Unknown]
  - Tricuspid valve incompetence [Unknown]
  - Myopathy [Unknown]
  - Anxiety [Unknown]
  - Blood pressure increased [Unknown]
  - Rhabdomyolysis [Unknown]
  - Pain [Unknown]
